FAERS Safety Report 15271297 (Version 2)
Quarter: 2018Q3

REPORT INFORMATION
  Report Type: Report from Study
  Country: IN (occurrence: IN)
  Receive Date: 20180813
  Receipt Date: 20180817
  Transmission Date: 20181010
  Serious: Yes (Hospitalization)
  Sender: FDA-Public Use
  Company Number: IN-B.I. PHARMACEUTICALS,INC./RIDGEFIELD-2018-BI-040262

PATIENT
  Age: 40 Year
  Sex: Male
  Weight: 85 kg

DRUGS (3)
  1. OSMITROL [Concomitant]
     Active Substance: MANNITOL
     Indication: ACUTE KIDNEY INJURY
     Route: 042
     Dates: start: 20170713, end: 20170717
  2. CEFOPERAZONE [Concomitant]
     Active Substance: CEFOPERAZONE
     Indication: ANTIBIOTIC THERAPY
     Route: 042
     Dates: start: 20170713, end: 20170718
  3. NINTEDANIB [Suspect]
     Active Substance: NINTEDANIB
     Indication: NON-SMALL CELL LUNG CANCER
     Route: 048
     Dates: start: 20170701, end: 20170703

REACTIONS (2)
  - Loss of consciousness [Recovered/Resolved]
  - Unresponsive to stimuli [Recovered/Resolved]

NARRATIVE: CASE EVENT DATE: 20170713
